FAERS Safety Report 6279576-8 (Version None)
Quarter: 2009Q3

REPORT INFORMATION
  Report Type: 
  Country: None (occurrence: None)
  Receive Date: 20090723
  Receipt Date: 20090714
  Transmission Date: 20100115
  Serious: Yes (Other)
  Sender: FDA-Public Use
  Company Number: A0797131A

PATIENT
  Sex: Male

DRUGS (2)
  1. VERAMYST [Suspect]
     Indication: NASAL CONGESTION
     Route: 045
  2. OTHER MEDICATIONS [Concomitant]

REACTIONS (2)
  - AGEUSIA [None]
  - ANOSMIA [None]
